FAERS Safety Report 18902533 (Version 1)
Quarter: 2021Q1

REPORT INFORMATION
  Report Type: Spontaneous
  Country: US (occurrence: US)
  Receive Date: 20210217
  Receipt Date: 20210217
  Transmission Date: 20210420
  Serious: No
  Sender: FDA-Public Use
  Company Number: US-009507513-2102USA005201

PATIENT
  Age: 75 Year
  Sex: Female

DRUGS (10)
  1. PROPRANOLOL [Suspect]
     Active Substance: PROPRANOLOL HYDROCHLORIDE
     Indication: PARKINSONIAN GAIT
     Dosage: 20 MILLIGRAM, TID
     Dates: start: 2015
  2. PROPRANOLOL [Suspect]
     Active Substance: PROPRANOLOL HYDROCHLORIDE
     Indication: TARDIVE DYSKINESIA
  3. AMANTADINE. [Suspect]
     Active Substance: AMANTADINE HYDROCHLORIDE
     Indication: TARDIVE DYSKINESIA
     Dosage: UNK
     Dates: start: 2015
  4. AMANTADINE. [Suspect]
     Active Substance: AMANTADINE HYDROCHLORIDE
     Indication: PARKINSONIAN GAIT
  5. PRAMIPEXOLE. [Suspect]
     Active Substance: PRAMIPEXOLE
     Indication: TARDIVE DYSKINESIA
     Dosage: UNK
     Dates: start: 2015
  6. PRAMIPEXOLE. [Suspect]
     Active Substance: PRAMIPEXOLE
     Indication: PARKINSONIAN GAIT
  7. SINEMET [Suspect]
     Active Substance: CARBIDOPA\LEVODOPA
     Indication: TARDIVE DYSKINESIA
     Dosage: UNK
     Route: 048
     Dates: start: 2015
  8. SINEMET [Suspect]
     Active Substance: CARBIDOPA\LEVODOPA
     Indication: PARKINSONIAN GAIT
  9. PRIMIDONE. [Suspect]
     Active Substance: PRIMIDONE
     Indication: TARDIVE DYSKINESIA
     Dosage: UNK
     Dates: start: 2015
  10. PRIMIDONE. [Suspect]
     Active Substance: PRIMIDONE
     Indication: PARKINSONIAN GAIT

REACTIONS (1)
  - Drug ineffective [Unknown]
